FAERS Safety Report 14298268 (Version 1)
Quarter: 2017Q4

REPORT INFORMATION
  Report Type: Spontaneous
  Country: CN (occurrence: CN)
  Receive Date: 20171218
  Receipt Date: 20171218
  Transmission Date: 20180321
  Serious: Yes (Other)
  Sender: FDA-Public Use
  Company Number: CN-ELI_LILLY_AND_COMPANY-CN201712003481

PATIENT
  Age: 76 Year
  Sex: Female

DRUGS (1)
  1. ZYPREXA [Suspect]
     Active Substance: OLANZAPINE
     Indication: PRODUCT USED FOR UNKNOWN INDICATION
     Dosage: 2.5 MG, UNKNOWN
     Route: 048

REACTIONS (5)
  - Lack of spontaneous speech [Unknown]
  - Decreased appetite [Unknown]
  - Chronic kidney disease [Unknown]
  - Hypersomnia [Unknown]
  - Slow response to stimuli [Unknown]
